FAERS Safety Report 6148092-6 (Version None)
Quarter: 2009Q2

REPORT INFORMATION
  Report Type: 
  Country: None (occurrence: None)
  Receive Date: 20090408
  Receipt Date: 20090407
  Transmission Date: 20091009
  Serious: Yes (Other)
  Sender: FDA-Public Use
  Company Number: B0569125A

PATIENT
  Age: 28 Year
  Sex: Male

DRUGS (3)
  1. ALBENDAZOLE [Suspect]
     Indication: NEUROCYSTICERCOSIS
     Dosage: 400MG TWICE PER DAY
  2. PREDNISOLONE [Suspect]
     Indication: NEUROCYSTICERCOSIS
  3. CARBAMAZEPINE [Concomitant]

REACTIONS (4)
  - CHORIORETINITIS [None]
  - EYE PRURITUS [None]
  - OCULAR HYPERAEMIA [None]
  - VISION BLURRED [None]
